FAERS Safety Report 11779064 (Version 1)
Quarter: 2015Q4

REPORT INFORMATION
  Report Type: Report from Study
  Country: US (occurrence: US)
  Receive Date: 20151125
  Receipt Date: 20151125
  Transmission Date: 20160304
  Serious: Yes (Hospitalization)
  Sender: FDA-Public Use
  Company Number: US-JNJFOC-20151123472

PATIENT
  Age: 78 Year
  Sex: Male

DRUGS (2)
  1. COUMADIN [Concomitant]
     Active Substance: WARFARIN SODIUM
  2. IMBRUVICA [Suspect]
     Active Substance: IBRUTINIB
     Indication: CHRONIC LYMPHOCYTIC LEUKAEMIA
     Route: 048
     Dates: start: 20140826

REACTIONS (4)
  - Off label use [Unknown]
  - Dyspnoea [Unknown]
  - Pain [Unknown]
  - Incorrect dose administered [Not Recovered/Not Resolved]

NARRATIVE: CASE EVENT DATE: 20140826
